FAERS Safety Report 6966207-4 (Version None)
Quarter: 2010Q3

REPORT INFORMATION
  Report Type: 
  Country: None (occurrence: None)
  Receive Date: 20100903
  Receipt Date: 20100824
  Transmission Date: 20110219
  Serious: Yes (Hospitalization)
  Sender: FDA-Public Use
  Company Number: DE-ABBOTT-10P-062-0665975-00

PATIENT
  Sex: Male
  Weight: 79 kg

DRUGS (12)
  1. HUMIRA [Suspect]
     Indication: PRODUCT USED FOR UNKNOWN INDICATION
     Dosage: 26 OCT 09:160MG,09 NOV 09:23 160 MG LOADING DOSE
     Dates: start: 20091026, end: 20091026
  2. HUMIRA [Suspect]
     Dosage: 80 MG LOADING DOSE
     Dates: start: 20091109, end: 20091109
  3. HUMIRA [Suspect]
     Dosage: 80 MG LOADING DOSE
     Dates: start: 20091123, end: 20091123
  4. HUMIRA [Suspect]
     Dates: start: 20091201
  5. SULFASALAZINE [Concomitant]
     Indication: PRODUCT USED FOR UNKNOWN INDICATION
     Dosage: MORNING:2, EVENING:2
  6. ENALAPRIL MALEATE [Concomitant]
     Indication: PRODUCT USED FOR UNKNOWN INDICATION
     Dosage: MORNING:1, EVENING :1
  7. METOPROLOL TARTRATE [Concomitant]
     Indication: PRODUCT USED FOR UNKNOWN INDICATION
     Dosage: MORNING:1,EVENING:1
  8. IDEOS [Concomitant]
     Indication: PRODUCT USED FOR UNKNOWN INDICATION
     Dosage: MORNING:1,EVENING:1
  9. OMEP [Concomitant]
     Indication: PRODUCT USED FOR UNKNOWN INDICATION
     Dosage: MORNING :1
  10. ENTOCORT EC [Concomitant]
     Indication: PRODUCT USED FOR UNKNOWN INDICATION
     Dosage: MORNING 1, EVENING:1
  11. CEFUROXIME [Concomitant]
     Indication: PRODUCT USED FOR UNKNOWN INDICATION
     Dosage: MORNING1,NOON:1,EVENING:1
  12. CLONT [Concomitant]
     Indication: PRODUCT USED FOR UNKNOWN INDICATION
     Dosage: MORNING1,EVENING:1

REACTIONS (7)
  - ADENOMYOSIS [None]
  - BILE DUCT STENOSIS [None]
  - CHOLANGITIS [None]
  - CHOLECYSTITIS [None]
  - CHOLELITHIASIS [None]
  - POST PROCEDURAL HAEMATOMA [None]
  - WOUND SECRETION [None]
